FAERS Safety Report 8474214-8 (Version None)
Quarter: 2012Q2

REPORT INFORMATION
  Report Type: 
  Country: None (occurrence: None)
  Receive Date: 20120628
  Receipt Date: 20120625
  Transmission Date: 20120825
  Serious: Yes (Other)
  Sender: FDA-Public Use
  Company Number: US-BAYER-2012-063313

PATIENT
  Age: 78 Year

DRUGS (1)
  1. GADAVIST [Suspect]
     Indication: NUCLEAR MAGNETIC RESONANCE IMAGING BRAIN
     Dosage: 12 ML, UNK

REACTIONS (6)
  - EYE MOVEMENT DISORDER [None]
  - DISORIENTATION [None]
  - NAUSEA [None]
  - PALLOR [None]
  - SNEEZING [None]
  - DIZZINESS [None]
